FAERS Safety Report 5515882-X (Version None)
Quarter: 2007Q4

REPORT INFORMATION
  Report Type: 
  Country: None (occurrence: None)
  Receive Date: 20071109
  Receipt Date: 20071026
  Transmission Date: 20080405
  Serious: Yes (Life-Threatening, Hospitalization)
  Sender: FDA-Public Use
  Company Number: GXKR2007PL09293

PATIENT
  Age: 15 Year
  Sex: Female

DRUGS (1)
  1. VERAPAMIL [Suspect]
     Dosage: 70 DF, ORAL
     Route: 048

REACTIONS (15)
  - ARRHYTHMIA [None]
  - BODY TEMPERATURE DECREASED [None]
  - BRADYCARDIA [None]
  - CARDIAC OUTPUT INCREASED [None]
  - HAEMODYNAMIC INSTABILITY [None]
  - HYPERGLYCAEMIA [None]
  - HYPOKALAEMIA [None]
  - HYPOTENSION [None]
  - INCORRECT DOSE ADMINISTERED [None]
  - LOSS OF CONSCIOUSNESS [None]
  - METABOLIC ACIDOSIS [None]
  - OVERDOSE [None]
  - SUICIDE ATTEMPT [None]
  - SUPRAVENTRICULAR EXTRASYSTOLES [None]
  - VASCULAR RESISTANCE SYSTEMIC DECREASED [None]
